FAERS Safety Report 7617220-5 (Version None)
Quarter: 2011Q3

REPORT INFORMATION
  Report Type: 
  Country: None (occurrence: None)
  Receive Date: 20110718
  Receipt Date: 20110714
  Transmission Date: 20111222
  Serious: Yes (Death, Hospitalization, Other)
  Sender: FDA-Public Use
  Company Number: US-AMGEN-USASP2011034802

PATIENT
  Age: 93 Year
  Sex: Male
  Weight: 94.558 kg

DRUGS (1)
  1. NPLATE [Suspect]
     Indication: IDIOPATHIC THROMBOCYTOPENIC PURPURA
     Dosage: 94 A?G, QWK
     Route: 058
     Dates: start: 20101104, end: 20110105

REACTIONS (4)
  - HEAD INJURY [None]
  - CEREBRAL THROMBOSIS [None]
  - FALL [None]
  - CEREBRAL HAEMORRHAGE TRAUMATIC [None]
